FAERS Safety Report 9608162 (Version 2)
Quarter: 2013Q4

REPORT INFORMATION
  Report Type: Spontaneous
  Country: US (occurrence: US)
  Receive Date: 20131009
  Receipt Date: 20131009
  Transmission Date: 20140711
  Serious: No
  Sender: FDA-Public Use
  Company Number: US-PURDUE-USA-2012-0093996

PATIENT
  Sex: Female
  Weight: 76.64 kg

DRUGS (2)
  1. BUTRANS [Suspect]
     Indication: PAIN
     Dosage: 20 MCG/HR, UNK
     Route: 062
     Dates: start: 20120417, end: 20120716
  2. BUTRANS [Suspect]
     Dosage: 10 MCG/HR, UNK
     Route: 062

REACTIONS (4)
  - Drug ineffective [Unknown]
  - Application site burn [Unknown]
  - Dermatitis contact [Unknown]
  - Application site scar [Unknown]
